FAERS Safety Report 11437472 (Version 1)
Quarter: 2015Q3

REPORT INFORMATION
  Report Type: Spontaneous
  Country: US (occurrence: US)
  Receive Date: 20150821
  Receipt Date: 20150821
  Transmission Date: 20151125
  Serious: No
  Sender: FDA-Public Use
  Company Number: US-ELI_LILLY_AND_COMPANY-US200705000660

PATIENT
  Sex: Female
  Weight: 81.63 kg

DRUGS (6)
  1. ACIPHEX [Concomitant]
     Active Substance: RABEPRAZOLE SODIUM
     Indication: GASTROOESOPHAGEAL REFLUX DISEASE
  2. DETROL /USA/ [Concomitant]
     Indication: HYPERTONIC BLADDER
  3. CRESTOR [Concomitant]
     Active Substance: ROSUVASTATIN CALCIUM
     Indication: BLOOD CHOLESTEROL INCREASED
  4. MICARDIS HCT [Concomitant]
     Active Substance: HYDROCHLOROTHIAZIDE\TELMISARTAN
     Indication: HYPERTENSION
  5. CYMBALTA [Suspect]
     Active Substance: DULOXETINE HYDROCHLORIDE
     Indication: BLADDER DISORDER
     Dosage: 60 MG, DAILY (1/D)
     Route: 048
     Dates: start: 20070419
  6. ZYRTEC [Concomitant]
     Active Substance: CETIRIZINE HYDROCHLORIDE
     Indication: HYPERSENSITIVITY

REACTIONS (11)
  - Restlessness [Unknown]
  - Musculoskeletal discomfort [Unknown]
  - Heart rate increased [Unknown]
  - Tension [Unknown]
  - Blood pressure abnormal [Unknown]
  - Blood alcohol decreased [Unknown]
  - Decreased appetite [Unknown]
  - Feeling abnormal [Unknown]
  - Weight decreased [Unknown]
  - Fatigue [Unknown]
  - Initial insomnia [Unknown]

NARRATIVE: CASE EVENT DATE: 2007
